FAERS Safety Report 9137193 (Version 1)
Quarter: 2013Q1

REPORT INFORMATION
  Report Type: Spontaneous
  Country: US (occurrence: US)
  Receive Date: 20130304
  Receipt Date: 20130304
  Transmission Date: 20140127
  Serious: No
  Sender: FDA-Public Use
  Company Number: US-ENDO PHARMACEUTICALS INC.-PERC20110055

PATIENT
  Age: 60 Year
  Sex: Male

DRUGS (1)
  1. PERCOCET [Suspect]
     Indication: PAIN
     Dosage: UNK
     Route: 048

REACTIONS (2)
  - Hyperaesthesia [Unknown]
  - Pruritus [Unknown]
